FAERS Safety Report 9461651 (Version 1)
Quarter: 2013Q3

REPORT INFORMATION
  Report Type: Spontaneous
  Country: FR (occurrence: None)
  Receive Date: 20130813
  Receipt Date: 20130813
  Transmission Date: 20140515
  Serious: Yes (Hospitalization)
  Sender: FDA-Public Use
  Company Number: FK201303166

PATIENT
  Age: 67 Year
  Sex: Male

DRUGS (8)
  1. PIPERACILLIN/TAZOBACTAM KABI [Suspect]
     Indication: PRODUCT USED FOR UNKNOWN INDICATION
     Route: 042
     Dates: start: 20130428, end: 20130522
  2. IMIPENEM/CILASTATIN [Suspect]
     Indication: PRODUCT USED FOR UNKNOWN INDICATION
     Route: 042
     Dates: start: 20130522, end: 20130527
  3. AMIKACIN [Suspect]
     Indication: PRODUCT USED FOR UNKNOWN INDICATION
  4. FLUCONAZOLE (FLUCONAZOLE) [Concomitant]
  5. VANCOMYCIN (VANCOMYCIN) [Concomitant]
  6. ATENOLOL (ATENOLOL) [Concomitant]
  7. PANTOPRAZOLE (PANTOPRAZOLE) [Concomitant]
  8. ATARAX (HYDROXYZINE) [Concomitant]

REACTIONS (9)
  - Neutropenia [None]
  - Sepsis [None]
  - Respiratory distress [None]
  - Staphylococcus test positive [None]
  - Citrobacter test positive [None]
  - Renal failure acute [None]
  - Dialysis [None]
  - Skin toxicity [None]
  - Drug reaction with eosinophilia and systemic symptoms [None]
